FAERS Safety Report 4320922-X (Version None)
Quarter: 2004Q1

REPORT INFORMATION
  Report Type: 
  Country: None (occurrence: None)
  Receive Date: 20040322
  Receipt Date: 20040311
  Transmission Date: 20041129
  Serious: Yes (Other)
  Sender: FDA-Public Use
  Company Number: GB-BRISTOL-MYERS SQUIBB COMPANY-12532321

PATIENT
  Sex: Male

DRUGS (2)
  1. IFOSFAMIDE [Suspect]
     Route: 042
     Dates: start: 20040309, end: 20040309
  2. ALBUMIN (HUMAN) [Concomitant]
     Indication: PROPHYLAXIS

REACTIONS (1)
  - ENCEPHALOPATHY [None]
